FAERS Safety Report 13092073 (Version 1)
Quarter: 2017Q1

REPORT INFORMATION
  Report Type: Spontaneous
  Country: US (occurrence: US)
  Receive Date: 20170104
  Receipt Date: 20170104
  Transmission Date: 20170428
  Serious: Yes (Hospitalization)
  Sender: FDA-Public Use
  Company Number: None

PATIENT
  Age: 47 Year
  Sex: Male
  Weight: 72 kg

DRUGS (23)
  1. ZOCIR [Concomitant]
  2. LEVOTHYROXINE. [Concomitant]
     Active Substance: LEVOTHYROXINE
  3. SYNTHROID [Concomitant]
     Active Substance: LEVOTHYROXINE SODIUM
  4. DILAUDID [Concomitant]
     Active Substance: HYDROMORPHONE HYDROCHLORIDE
  5. LASIX [Concomitant]
     Active Substance: FUROSEMIDE
  6. CLARITIN [Concomitant]
     Active Substance: LORATADINE
  7. LASIX [Concomitant]
     Active Substance: FUROSEMIDE
  8. ROPINIROLE. [Concomitant]
     Active Substance: ROPINIROLE
  9. VALPROIC ACID. [Suspect]
     Active Substance: VALPROIC ACID
     Route: 048
     Dates: start: 20161115, end: 20161211
  10. ALDACTONE [Concomitant]
     Active Substance: SPIRONOLACTONE
  11. VITAMIN D [Concomitant]
     Active Substance: CHOLECALCIFEROL
  12. BENZTROPINE [Concomitant]
     Active Substance: BENZTROPINE
  13. CEFEPIME [Concomitant]
     Active Substance: CEFEPIME HYDROCHLORIDE
  14. PEPCID [Concomitant]
     Active Substance: FAMOTIDINE
  15. ZESTRIL [Concomitant]
     Active Substance: LISINOPRIL
  16. LINZESS [Concomitant]
     Active Substance: LINACLOTIDE
  17. ATIVAN [Concomitant]
     Active Substance: LORAZEPAM
  18. PROTONIX [Concomitant]
     Active Substance: PANTOPRAZOLE SODIUM
  19. ZIPRASIDONE. [Concomitant]
     Active Substance: ZIPRASIDONE
  20. INDERAL [Concomitant]
     Active Substance: PROPRANOLOL HYDROCHLORIDE
  21. ZOFRAN [Concomitant]
     Active Substance: ONDANSETRON HYDROCHLORIDE
  22. PROMETHAZINE [Concomitant]
     Active Substance: PROMETHAZINE\PROMETHAZINE HYDROCHLORIDE
  23. LOVENOX [Concomitant]
     Active Substance: ENOXAPARIN SODIUM

REACTIONS (6)
  - Dysphagia [None]
  - Sepsis [None]
  - Hyponatraemia [None]
  - Quadriplegia [None]
  - Spinal cord compression [None]
  - Fall [None]

NARRATIVE: CASE EVENT DATE: 20161120
